FAERS Safety Report 6664315-9 (Version None)
Quarter: 2010Q2

REPORT INFORMATION
  Report Type: 
  Country: None (occurrence: None)
  Receive Date: 20100401
  Receipt Date: 20100324
  Transmission Date: 20101027
  Serious: Yes (Hospitalization, Other)
  Sender: FDA-Public Use
  Company Number: PHEH2008US06031

PATIENT

DRUGS (67)
  1. AREDIA [Suspect]
  2. ZOMETA [Suspect]
     Dosage: UNK
     Dates: end: 20060401
  3. CHEMOTHERAPEUTICS NOS [Concomitant]
  4. CLINDAMYCIN [Concomitant]
     Dosage: 1300 MG / QD
     Route: 048
     Dates: end: 20090112
  5. ABRAXANE [Concomitant]
  6. AVASTIN [Concomitant]
  7. DILTIAZEM HCL [Concomitant]
     Dosage: UNK
     Dates: end: 20090112
  8. ATENOLOL [Concomitant]
     Dosage: UNK
     Dates: end: 20090112
  9. PAXIL [Concomitant]
  10. DECADRON [Concomitant]
  11. SENOKOT                                 /USA/ [Concomitant]
  12. DILAUDID [Concomitant]
  13. ALEVE [Concomitant]
  14. TAXOTERE [Concomitant]
  15. XELODA [Concomitant]
  16. TAXANES [Concomitant]
  17. ARIMIDEX [Concomitant]
  18. CIPRO [Concomitant]
     Dosage: 500 MG / BID
     Route: 048
     Dates: end: 20090112
  19. PACLITAXEL [Concomitant]
  20. LYRICA [Concomitant]
  21. QINOLON [Concomitant]
  22. VALTREX [Concomitant]
  23. REGLAN [Concomitant]
  24. PERCOCET [Concomitant]
  25. DURAGESIC-100 [Concomitant]
  26. ROCEPHIN [Concomitant]
     Dosage: 1 GM
     Dates: end: 20090112
  27. TORADOL [Concomitant]
  28. NEURONTIN [Concomitant]
  29. ULTRAM [Concomitant]
  30. CARDIZEM [Concomitant]
  31. FAMVIR                                  /NET/ [Concomitant]
     Dosage: 500 MG
  32. ZOVIRAX [Concomitant]
     Dosage: 5%
  33. ZITHROMAX [Concomitant]
     Dosage: 250 MG
  34. SKELAXIN [Concomitant]
     Dosage: 400 MG / 1-2 Q8HRS PRN
     Route: 048
     Dates: end: 20070118
  35. CYCLOBENZAPRINE [Concomitant]
     Dosage: 10 MG
  36. LORAZEPAM [Concomitant]
     Dosage: 0.5 MG
  37. DEXAMETHASONE [Concomitant]
     Dosage: 4 MG
  38. DOXYCYCLINE [Concomitant]
     Dosage: 100 MG
  39. CHLORHEXIDINE GLUCONATE [Concomitant]
     Dosage: 0.12%
  40. LEVAQUIN [Concomitant]
     Dosage: 500 MG
  41. PAROXETINE HYDROCHLORIDE [Concomitant]
     Dosage: 20 MG
  42. OXYCODONE HCL AND ACETAMINOPHEN [Concomitant]
     Dosage: 5/325
  43. TRIAMCINOLONE [Concomitant]
     Dosage: 0.1 %
  44. FUROSEMIDE [Concomitant]
     Dosage: 20 MG
  45. CIPROFLOXACIN HYDROCHLORIDE [Concomitant]
     Dosage: 500 MG
  46. GABAPENTIN [Concomitant]
     Dosage: 300 MG
  47. METOCLOPRAMIDE [Concomitant]
     Dosage: 10 MG
  48. HYDROMORPHONE HCL [Concomitant]
     Dosage: 2 MG
  49. CLOTRIMAZOLE [Concomitant]
     Dosage: 10 MG
  50. ETODOLAC [Concomitant]
     Dosage: 400 MG
  51. TRAMADOL HYDROCHLORIDE [Concomitant]
     Dosage: 50 MG
  52. PREDNISOLONE [Concomitant]
     Dosage: 15 MG/5ML
  53. NYSTATIN [Concomitant]
     Dosage: UNK
  54. DIFLUCAN [Concomitant]
     Dosage: 100 MG / QD
     Route: 048
     Dates: end: 20090112
  55. VICODIN [Concomitant]
     Dosage: UNK / TID PRN
  56. BACTRIM DS [Concomitant]
  57. FOSAMAX [Concomitant]
     Dosage: 70 MG / Q WEEK
     Route: 048
  58. OSCAL 500-D [Concomitant]
  59. LODINE [Concomitant]
     Dosage: 400 MG / BID
     Route: 048
  60. ATIVAN [Concomitant]
     Indication: ANXIETY
     Dosage: 0.5 MG / BID PRN
     Dates: end: 20070118
  61. FLEXERIL [Concomitant]
     Dosage: 10 MG / TID PRN
     Route: 048
     Dates: end: 20070118
  62. LASIX [Concomitant]
     Dosage: 40 MG / QD
     Route: 048
     Dates: end: 20090112
  63. PERIDEX [Concomitant]
  64. BIOTENE [Concomitant]
  65. SENOKOT                                 /UNK/ [Concomitant]
  66. MEGESTROL [Concomitant]
  67. COMPAZINE [Concomitant]

REACTIONS (55)
  - ABSCESS DRAINAGE [None]
  - ALOPECIA [None]
  - ANXIETY [None]
  - AORTIC ARTERIOSCLEROSIS [None]
  - ARTHRALGIA [None]
  - ASTHENIA [None]
  - BACK PAIN [None]
  - BLOOD URINE PRESENT [None]
  - BONE LESION [None]
  - BONE PAIN [None]
  - BREAST CANCER RECURRENT [None]
  - BRONCHITIS [None]
  - CATHETER PLACEMENT [None]
  - CRYOTHERAPY [None]
  - CYSTITIS HAEMORRHAGIC [None]
  - DEFORMITY [None]
  - DEPRESSION [None]
  - DIARRHOEA [None]
  - DYSKINESIA [None]
  - DYSURIA [None]
  - EAR PAIN [None]
  - EMOTIONAL DISTRESS [None]
  - EXTERNAL EAR DISORDER [None]
  - GASTROOESOPHAGEAL REFLUX DISEASE [None]
  - GENERAL PHYSICAL HEALTH DETERIORATION [None]
  - HAEMORRHOIDS [None]
  - HYPERTENSION [None]
  - HYPOAESTHESIA [None]
  - INFECTION [None]
  - JAW FRACTURE [None]
  - LACRIMATION INCREASED [None]
  - MENINGITIS [None]
  - MUSCLE SPASMS [None]
  - MYALGIA [None]
  - MYOSITIS [None]
  - NEUROGENIC BLADDER [None]
  - NEUROPATHY PERIPHERAL [None]
  - ONYCHOMYCOSIS [None]
  - ORAL CANDIDIASIS [None]
  - OSTEOMYELITIS [None]
  - OSTEONECROSIS [None]
  - OSTEOPENIA [None]
  - OTITIS MEDIA [None]
  - PAIN [None]
  - PAIN IN JAW [None]
  - RADIOTHERAPY [None]
  - SEQUESTRECTOMY [None]
  - SINUS DISORDER [None]
  - SKIN LESION [None]
  - SQUAMOUS CELL CARCINOMA [None]
  - TOOTH EXTRACTION [None]
  - UPPER RESPIRATORY TRACT INFECTION [None]
  - URINARY RETENTION [None]
  - VAGINAL INFECTION [None]
  - WHEELCHAIR USER [None]
